FAERS Safety Report 5018303-9 (Version None)
Quarter: 2006Q2

REPORT INFORMATION
  Report Type: 
  Country: None (occurrence: None)
  Receive Date: 20060530
  Receipt Date: 20060515
  Transmission Date: 20061013
  Serious: Yes (Hospitalization, Other)
  Sender: FDA-Public Use
  Company Number: 2006025010

PATIENT
  Age: 44 Year
  Sex: Female
  Weight: 76 kg

DRUGS (2)
  1. CELEBREX [Suspect]
     Indication: BACK PAIN
     Dosage: 200 MG (200 MG, 1 IN 1 D), ORAL
     Route: 048
     Dates: start: 20060101
  2. LEVOTHYROXINE SODIUM [Concomitant]

REACTIONS (8)
  - AUTOIMMUNE THROMBOCYTOPENIA [None]
  - EPSTEIN-BARR VIRUS ANTIBODY POSITIVE [None]
  - HAEMATEMESIS [None]
  - HAEMORRHAGE [None]
  - NIGHT SWEATS [None]
  - PETECHIAE [None]
  - RESPIRATORY TRACT INFECTION [None]
  - RHINITIS [None]
